FAERS Safety Report 20499897 (Version 1)
Quarter: 2022Q1

REPORT INFORMATION
  Report Type: Other
  Country: US (occurrence: US)
  Receive Date: 20220222
  Receipt Date: 20220222
  Transmission Date: 20220423
  Serious: Yes (Hospitalization)
  Sender: FDA-Public Use
  Company Number: US-HLS-202200236

PATIENT
  Age: 40 Year
  Sex: Female

DRUGS (1)
  1. CLOZAPINE [Suspect]
     Active Substance: CLOZAPINE
     Indication: Schizoaffective disorder
     Dosage: AT LEAST 10 YEARS
     Route: 065

REACTIONS (5)
  - Cardiac arrest [Unknown]
  - Brain hypoxia [Unknown]
  - Shock [Unknown]
  - Pulse absent [Unknown]
  - Therapy interrupted [Unknown]
